FAERS Safety Report 13771177 (Version 1)
Quarter: 2017Q3

REPORT INFORMATION
  Report Type: Spontaneous
  Country: US (occurrence: US)
  Receive Date: 20170720
  Receipt Date: 20170720
  Transmission Date: 20171127
  Serious: Yes (Other)
  Sender: FDA-Public Use
  Company Number: None

PATIENT
  Age: 52 Year
  Sex: Male
  Weight: 78 kg

DRUGS (8)
  1. VALIUM [Concomitant]
     Active Substance: DIAZEPAM
  2. BUSPIRONE [Concomitant]
     Active Substance: BUSPIRONE HYDROCHLORIDE
  3. PERCOCET [Concomitant]
     Active Substance: ACETAMINOPHEN\OXYCODONE HYDROCHLORIDE
  4. ANASTRAZOLE [Concomitant]
     Active Substance: ANASTROZOLE
  5. AFINITOR [Suspect]
     Active Substance: EVEROLIMUS
     Indication: BREAST CANCER
     Dosage: ?          OTHER DOSE:MG;?
     Route: 048
     Dates: start: 20170412, end: 20170719
  6. PRAVASTATIN. [Concomitant]
     Active Substance: PRAVASTATIN
  7. EXEMESTANE. [Concomitant]
     Active Substance: EXEMESTANE
  8. NORVASC [Concomitant]
     Active Substance: AMLODIPINE BESYLATE

REACTIONS (1)
  - Disease progression [None]

NARRATIVE: CASE EVENT DATE: 20170719
